FAERS Safety Report 7707051-X (Version None)
Quarter: 2011Q3

REPORT INFORMATION
  Report Type: 
  Country: None (occurrence: None)
  Receive Date: 20110824
  Receipt Date: 20110818
  Transmission Date: 20111222
  Serious: Yes (Death, Hospitalization, Other)
  Sender: FDA-Public Use
  Company Number: NL-BAYER-201042329GPV

PATIENT
  Age: 79 Year
  Sex: Female
  Weight: 68 kg

DRUGS (10)
  1. CHLORTHALIDONE [Concomitant]
     Indication: HYPERTENSION
     Dosage: 25 MG, QD
     Dates: start: 20030101, end: 20101029
  2. NEXAVAR [Suspect]
     Dosage: 400 MG, BID
     Route: 048
     Dates: start: 20101015, end: 20101105
  3. ASCAL [Concomitant]
     Indication: PERIPHERAL ARTERY ANGIOPLASTY
     Dosage: 100 MG, QD
     Dates: start: 20080101
  4. ATENOLOL [Concomitant]
     Indication: HYPERTENSION
     Dosage: 100 MG, QD
  5. PRIMPERAN TAB [Concomitant]
     Dosage: UNK
     Dates: start: 20101112
  6. THYRAX [Concomitant]
     Indication: HYPOTHYROIDISM
     Dosage: 62.5 MG, QD
     Dates: start: 20030101
  7. COZAAR [Concomitant]
     Indication: HYPERTENSION
     Dosage: 50 MG, BID
     Dates: start: 20030101
  8. NEXAVAR [Suspect]
     Dosage: 400MG -200MG(600MG) ON TIME A DAY
     Dates: start: 20101112, end: 20101117
  9. NEXAVAR [Suspect]
     Indication: HEPATIC NEOPLASM MALIGNANT
     Dosage: 400 MG IN AM, AND 200 MG IN HS
     Route: 048
     Dates: start: 20101005, end: 20101014
  10. METOCLOPRAMIDE [Concomitant]
     Dosage: 10 MG, TID
     Dates: start: 20100412

REACTIONS (13)
  - DECREASED APPETITE [None]
  - LOSS OF CONSCIOUSNESS [None]
  - DEFICIENCY OF BILE SECRETION [None]
  - INFLUENZA LIKE ILLNESS [None]
  - ABDOMINAL PAIN UPPER [None]
  - CONFUSIONAL STATE [None]
  - FATIGUE [None]
  - WEIGHT DECREASED [None]
  - COMA HEPATIC [None]
  - HYPERTENSION [None]
  - BLOOD BILIRUBIN INCREASED [None]
  - FAECAL INCONTINENCE [None]
  - URINARY INCONTINENCE [None]
